FAERS Safety Report 6304652-0 (Version None)
Quarter: 2009Q3

REPORT INFORMATION
  Report Type: 
  Country: None (occurrence: None)
  Receive Date: 20090811
  Receipt Date: 20090408
  Transmission Date: 20100115
  Serious: Yes (Hospitalization, Other)
  Sender: FDA-Public Use
  Company Number: PHHO2009GB04151

PATIENT

DRUGS (11)
  1. RAD 666 RAD+TAB+PTR [Suspect]
     Dosage: UNK
     Dates: start: 20081217, end: 20090202
  2. MYFORTIC [Suspect]
     Dosage: UNK
     Dates: start: 20081211
  3. LASIX [Concomitant]
  4. OMEPRAZOLE [Concomitant]
  5. ATORVASTATIN [Concomitant]
  6. SEPTRIN [Concomitant]
  7. QUININE [Concomitant]
  8. ACYCLOVIR [Concomitant]
  9. CARVEDILOL [Concomitant]
  10. ASPIRIN [Concomitant]
  11. SERETIDE [Concomitant]

REACTIONS (6)
  - CARDIAC FAILURE [None]
  - DIASTOLIC DYSFUNCTION [None]
  - DYSPNOEA [None]
  - FLUID OVERLOAD [None]
  - OEDEMA PERIPHERAL [None]
  - RENAL DISORDER [None]
